FAERS Safety Report 8458224-2 (Version None)
Quarter: 2012Q2

REPORT INFORMATION
  Report Type: 
  Country: None (occurrence: None)
  Receive Date: 20120615
  Receipt Date: 20120611
  Transmission Date: 20120825
  Serious: Yes (Other)
  Sender: FDA-Public Use
  Company Number: AUR-APL-2012-02301

PATIENT
  Age: 67 Year
  Sex: Female
  Weight: 80 kg

DRUGS (1)
  1. CEFTRIAXONE [Suspect]
     Indication: PRODUCT USED FOR UNKNOWN INDICATION
     Dosage: 2 GM INTRAVENOUS
     Route: 042
     Dates: start: 20120511, end: 20120514

REACTIONS (6)
  - HYPOTENSION [None]
  - TACHYCARDIA [None]
  - DYSPNOEA [None]
  - HYPERHIDROSIS [None]
  - PARAESTHESIA [None]
  - PALLOR [None]
